FAERS Safety Report 6915948-3 (Version None)
Quarter: 2010Q3

REPORT INFORMATION
  Report Type: 
  Country: None (occurrence: None)
  Receive Date: 20100810
  Receipt Date: 20100708
  Transmission Date: 20110219
  Serious: No
  Sender: FDA-Public Use
  Company Number: US-BAYER-201018126BCC

PATIENT
  Age: 21 Year
  Sex: Male
  Weight: 59 kg

DRUGS (1)
  1. ALEVE (CAPLET) [Suspect]
     Indication: NECK PAIN
     Dosage: AS USED: 440/220 MG  UNIT DOSE: 220 MG
     Route: 048
     Dates: start: 20100706, end: 20100707

REACTIONS (1)
  - RASH PUSTULAR [None]
